FAERS Safety Report 11287817 (Version 1)
Quarter: 2015Q3

REPORT INFORMATION
  Report Type: Spontaneous
  Country: US (occurrence: US)
  Receive Date: 20150721
  Receipt Date: 20150721
  Transmission Date: 20151125
  Serious: No
  Sender: FDA-Public Use
  Company Number: US-UNITED THERAPEUTICS-UNT-2015-001448

PATIENT
  Sex: Male
  Weight: 117.91 kg

DRUGS (2)
  1. REMODULIN [Suspect]
     Active Substance: TREPROSTINIL
     Indication: PULMONARY HYPERTENSION
     Dosage: 0.045 ?G/KG/MIN, CONTINUING
     Route: 041
     Dates: start: 20140117
  2. REVATIO [Concomitant]
     Active Substance: SILDENAFIL CITRATE
     Indication: PRODUCT USED FOR UNKNOWN INDICATION

REACTIONS (6)
  - Injection site erythema [Unknown]
  - Injection site discharge [Unknown]
  - Malaise [Unknown]
  - Dyspnoea [Unknown]
  - Injection site scab [Unknown]
  - Feeling cold [Unknown]
